FAERS Safety Report 11786718 (Version 1)
Quarter: 2015Q4

REPORT INFORMATION
  Report Type: Spontaneous
  Country: JP (occurrence: JP)
  Receive Date: 20151130
  Receipt Date: 20151130
  Transmission Date: 20160305
  Serious: Yes (Other)
  Sender: FDA-Public Use
  Company Number: JP-JNJFOC-20151118002

PATIENT

DRUGS (3)
  1. METHOTREXATE [Concomitant]
     Active Substance: METHOTREXATE
     Dosage: STABLE DOSE OF 6 ? 16 MG/WEEK ADMINISTERED 4 WEEKS PRIOR TO STUDY ENROLLMENT; ORAL DOSE
     Route: 048
  2. INFLIXIMAB, RECOMBINANT [Suspect]
     Active Substance: INFLIXIMAB
     Indication: RHEUMATOID ARTHRITIS
     Route: 042
  3. FOLIC ACID. [Concomitant]
     Active Substance: FOLIC ACID
     Dosage: MORE OR LESS THAN 5 MG PER WEEK, ORAL DOSE
     Route: 048

REACTIONS (24)
  - Nasopharyngitis [Unknown]
  - Drug specific antibody present [Unknown]
  - Infusion related reaction [Unknown]
  - Infection [Unknown]
  - Rash [Unknown]
  - Diarrhoea [Unknown]
  - Oral herpes [Unknown]
  - Herpes zoster [Unknown]
  - Pneumocystis jirovecii pneumonia [Unknown]
  - Pneumonia [Unknown]
  - Large intestinal ulcer [Unknown]
  - Pharyngitis [Unknown]
  - Cataract [Unknown]
  - Listeria sepsis [Unknown]
  - Anaphylactic shock [Unknown]
  - Nausea [Unknown]
  - Influenza [Unknown]
  - Cervical dysplasia [Unknown]
  - Eczema [Unknown]
  - Upper respiratory tract inflammation [Unknown]
  - Bronchitis [Unknown]
  - Blood beta-D-glucan increased [Unknown]
  - Hepatic function abnormal [Unknown]
  - Cystitis [Unknown]
